FAERS Safety Report 9175984 (Version 2)
Quarter: 2014Q1

REPORT INFORMATION
  Report Type: Other
  Country: FR (occurrence: FR)
  Receive Date: 20130320
  Receipt Date: 20140127
  Transmission Date: 20141002
  Serious: Yes (Life-Threatening, Hospitalization)
  Sender: FDA-Public Use
  Company Number: FR-WATSON-2013-04148

PATIENT
  Age: 30 Year
  Sex: Female

DRUGS (1)
  1. NIFEDIPINE [Suspect]
     Indication: THREATENED LABOUR
     Dosage: 30 MG, BID
     Route: 048
     Dates: start: 20120904, end: 20120909

REACTIONS (5)
  - Cardiac failure [Recovered/Resolved]
  - Rales [Recovered/Resolved]
  - Oxygen saturation decreased [Recovered/Resolved]
  - Dyspnoea [Recovered/Resolved]
  - Exposure during pregnancy [Recovered/Resolved]
